FAERS Safety Report 21779539 (Version 1)
Quarter: 2022Q4

REPORT INFORMATION
  Report Type: Spontaneous
  Country: JP (occurrence: JP)
  Receive Date: 20221226
  Receipt Date: 20221226
  Transmission Date: 20230113
  Serious: Yes (Life-Threatening, Other)
  Sender: FDA-Public Use
  Company Number: JP-ABBVIE-4129326

PATIENT
  Age: 55 Year
  Sex: Female
  Weight: 62 kg

DRUGS (7)
  1. HUMIRA [Suspect]
     Active Substance: ADALIMUMAB
     Indication: Rheumatoid arthritis
     Route: 058
     Dates: start: 20100804, end: 202201
  2. HUMIRA [Suspect]
     Active Substance: ADALIMUMAB
     Dosage: 100 MG
     Route: 058
  3. METHOTREXATE [Concomitant]
     Active Substance: METHOTREXATE
     Indication: Rheumatoid arthritis
     Dosage: 8 MG
     Route: 048
     Dates: start: 20120806, end: 202201
  4. ETODOLAC [Concomitant]
     Active Substance: ETODOLAC
     Indication: Rheumatoid arthritis
     Dosage: 200 MILLIGRAM
     Route: 048
  5. PREDONINE [Suspect]
     Active Substance: PREDNISOLONE
     Indication: Product used for unknown indication
     Route: 065
     Dates: start: 202111
  6. Fluticasone furoate and vilanterol trifenatate [Concomitant]
     Indication: Asthma
     Dosage: 1 INHALATION/1 TIME
     Route: 055
     Dates: start: 20160718
  7. MIRABEGRON [Concomitant]
     Active Substance: MIRABEGRON
     Indication: Neurogenic bladder
     Route: 048
     Dates: start: 20140610

REACTIONS (8)
  - T-cell type acute leukaemia [Recovering/Resolving]
  - Asthma [Unknown]
  - White blood cell count increased [Recovered/Resolved]
  - Asthma [Unknown]
  - Oral candidiasis [Unknown]
  - Diabetes mellitus [Unknown]
  - Synovectomy [Recovered/Resolved]
  - Diabetes mellitus [Unknown]

NARRATIVE: CASE EVENT DATE: 20110401
